FAERS Safety Report 7271098-0 (Version None)
Quarter: 2011Q1

REPORT INFORMATION
  Report Type: 
  Country: None (occurrence: None)
  Receive Date: 20110202
  Receipt Date: 20101222
  Transmission Date: 20110831
  Serious: Yes (Death, Other)
  Sender: FDA-Public Use
  Company Number: US-BAXTER-2009BH016654

PATIENT
  Age: 66 Year
  Sex: Male
  Weight: 73 kg

DRUGS (3)
  1. HEPARIN SODIUM INJECTION [Suspect]
     Route: 040
     Dates: start: 20070921, end: 20070921
  2. ASPIRIN [Concomitant]
     Indication: PRODUCT USED FOR UNKNOWN INDICATION
     Route: 065
  3. HEPARIN SODIUM INJECTION [Suspect]
     Indication: HAEMODIALYSIS
     Route: 010
     Dates: start: 20070921, end: 20070921

REACTIONS (13)
  - RENAL FAILURE CHRONIC [None]
  - HYPERHIDROSIS [None]
  - BLOOD PRESSURE DECREASED [None]
  - HEADACHE [None]
  - CHEST PAIN [None]
  - PHARYNGEAL OEDEMA [None]
  - ERYTHEMA [None]
  - CARDIAC DISORDER [None]
  - VOMITING [None]
  - HAEMORRHAGE [None]
  - ASTHENIA [None]
  - ABDOMINAL PAIN [None]
  - NAUSEA [None]
